FAERS Safety Report 19587842 (Version 1)
Quarter: 2021Q3

REPORT INFORMATION
  Report Type: Spontaneous
  Country: EG (occurrence: EG)
  Receive Date: 20210721
  Receipt Date: 20210721
  Transmission Date: 20211014
  Serious: Yes (Hospitalization, Other)
  Sender: FDA-Public Use
  Company Number: EG-HIKMA PHARMACEUTICALS USA INC.-EG-H14001-21-03292

PATIENT
  Age: 50 Year
  Sex: Male

DRUGS (3)
  1. PACLITAXEL. [Suspect]
     Active Substance: PACLITAXEL
     Indication: GASTRIC CANCER
     Dosage: ADMINISTERED ON DAY ONE ONLY OF EVERY 21 DAYS CYCLE
     Dates: start: 2021
  2. CISPLATIN. [Suspect]
     Active Substance: CISPLATIN
     Indication: GASTRIC CANCER
     Dosage: ADMINISTERED ON DAY ONE ONLY OF EVERY 21 DAYS CYCLE
     Route: 065
     Dates: start: 2021
  3. UTORAL [Suspect]
     Active Substance: FLUOROURACIL
     Indication: GASTRIC CANCER
     Dosage: (1GM/M2) ON DAYS FROM ONE TO FIVE OF EVERY 21 DAYS CYCLE
     Route: 065
     Dates: start: 2021

REACTIONS (8)
  - Peripheral swelling [Unknown]
  - Blood pressure decreased [Recovering/Resolving]
  - Hypoaesthesia [Unknown]
  - Dyspnoea [Recovering/Resolving]
  - Walking disability [Unknown]
  - Fluid intake reduced [Unknown]
  - Apathy [Unknown]
  - Constipation [Unknown]

NARRATIVE: CASE EVENT DATE: 20210427
